FAERS Safety Report 8770082 (Version 1)
Quarter: 2012Q4

REPORT INFORMATION
  Report Type: Report from Study
  Country: CA (occurrence: CA)
  Receive Date: 20120906
  Receipt Date: 20120906
  Transmission Date: 20130627
  Serious: Yes (Other)
  Sender: FDA-Public Use
  Company Number: CA-JNJFOC-20120814224

PATIENT
  Age: 35 Year
  Sex: Male
  Weight: 77.1 kg

DRUGS (2)
  1. REMICADE [Suspect]
     Indication: COLITIS ULCERATIVE
     Route: 042
     Dates: start: 20110803
  2. ZANTAC [Concomitant]
     Route: 065

REACTIONS (2)
  - Road traffic accident [Recovering/Resolving]
  - Multiple fractures [Recovering/Resolving]
